FAERS Safety Report 7586769-6 (Version None)
Quarter: 2011Q3

REPORT INFORMATION
  Report Type: 
  Country: None (occurrence: None)
  Receive Date: 20110701
  Receipt Date: 20110623
  Transmission Date: 20111222
  Serious: No
  Sender: FDA-Public Use
  Company Number: B0728741A

PATIENT

DRUGS (1)
  1. RELENZA [Suspect]
     Route: 063

REACTIONS (1)
  - EXPOSURE DURING BREAST FEEDING [None]
